FAERS Safety Report 21917071 (Version 8)
Quarter: 2024Q1

REPORT INFORMATION
  Report Type: Spontaneous
  Country: US (occurrence: US)
  Receive Date: 20230126
  Receipt Date: 20240226
  Transmission Date: 20240410
  Serious: Yes (Other)
  Sender: FDA-Public Use
  Company Number: US-BAYER-2023P005335

PATIENT
  Age: 12 Year
  Sex: Male

DRUGS (14)
  1. JIVI [Suspect]
     Active Substance: DAMOCTOCOG ALFA PEGOL
     Indication: Factor VIII deficiency
     Dosage: UNK
     Route: 042
     Dates: start: 201207, end: 201207
  2. JIVI [Suspect]
     Active Substance: DAMOCTOCOG ALFA PEGOL
     Indication: Factor VIII deficiency
     Dosage: UNK
     Route: 042
     Dates: start: 20221223, end: 20221223
  3. JIVI [Suspect]
     Active Substance: DAMOCTOCOG ALFA PEGOL
     Indication: Factor VIII deficiency
     Dosage: 3000 IU ON MONDAY, WEDNESDAY, AND
     Route: 042
  4. JIVI [Suspect]
     Active Substance: DAMOCTOCOG ALFA PEGOL
     Indication: Factor VIII deficiency
     Dosage: 1 DF, FOR THE FOREARM BRUISED TREATMENT
     Route: 042
     Dates: start: 20230109
  5. JIVI [Suspect]
     Active Substance: DAMOCTOCOG ALFA PEGOL
     Indication: Factor VIII deficiency
     Dosage: 1 DF, FOR THE RIBS BRUISED TREATMENT
     Route: 042
     Dates: start: 20230115
  6. JIVI [Suspect]
     Active Substance: DAMOCTOCOG ALFA PEGOL
     Indication: Factor VIII deficiency
     Dosage: 1 DF, ONCE - TO TREAT RIGHT HIP BLEED
     Route: 042
  7. JIVI [Suspect]
     Active Substance: DAMOCTOCOG ALFA PEGOL
     Indication: Factor VIII deficiency
     Dosage: 1 DF, ONCE - TO TREAT BICEP BLEED
     Route: 042
     Dates: start: 20230402, end: 20230402
  8. JIVI [Suspect]
     Active Substance: DAMOCTOCOG ALFA PEGOL
     Indication: Factor VIII deficiency
     Dosage: 1 DF, ONCE
     Route: 042
     Dates: start: 20230413, end: 20230413
  9. JIVI [Suspect]
     Active Substance: DAMOCTOCOG ALFA PEGOL
     Indication: Factor VIII deficiency
     Dosage: 1 DF, ONCE - TO TREAT BLEED
     Route: 042
     Dates: start: 20230414, end: 20230414
  10. JIVI [Suspect]
     Active Substance: DAMOCTOCOG ALFA PEGOL
     Indication: Factor VIII deficiency
     Dosage: 1 DF, ONCE
     Route: 042
     Dates: start: 20230830, end: 20230830
  11. JIVI [Suspect]
     Active Substance: DAMOCTOCOG ALFA PEGOL
     Indication: Factor VIII deficiency
     Dosage: TUESDAYS, THURSDAYS + SATURDAYS AND EVERY 24 HOURS AS NEEDED
     Route: 042
     Dates: start: 202308
  12. JIVI [Suspect]
     Active Substance: DAMOCTOCOG ALFA PEGOL
     Indication: Factor VIII deficiency
     Dosage: 3000 IU; TUESDAYS, THURSDAYS + SATURDAYS AND EVERY 24 HOURS AS NEEDED FOR BLEEDS
     Route: 042
  13. JIVI [Suspect]
     Active Substance: DAMOCTOCOG ALFA PEGOL
     Indication: Factor VIII deficiency
     Dosage: 2000 IU
     Dates: start: 202212
  14. JIVI [Suspect]
     Active Substance: DAMOCTOCOG ALFA PEGOL
     Indication: Factor VIII deficiency
     Dosage: 1000 IU
     Dates: start: 202212

REACTIONS (10)
  - Haemorrhage [None]
  - Traumatic haemorrhage [None]
  - Muscle haemorrhage [Recovered/Resolved]
  - Muscle haemorrhage [Recovered/Resolved]
  - Haemarthrosis [None]
  - Muscle haemorrhage [Recovered/Resolved]
  - Contusion [None]
  - Bone contusion [None]
  - Fall [None]
  - Haemorrhage [None]

NARRATIVE: CASE EVENT DATE: 20230109
